FAERS Safety Report 23077062 (Version 2)
Quarter: 2023Q4

REPORT INFORMATION
  Report Type: Spontaneous
  Country: US (occurrence: US)
  Receive Date: 20231018
  Receipt Date: 20231027
  Transmission Date: 20240109
  Serious: No
  Sender: FDA-Public Use
  Company Number: US-JNJFOC-20231010861

PATIENT

DRUGS (4)
  1. TYLENOL [Suspect]
     Active Substance: ACETAMINOPHEN
     Indication: Pyrexia
     Route: 065
     Dates: start: 20230928
  2. FLUCELVAX QUADRIVALENT NOS [Concomitant]
     Active Substance: INFLUENZA A VIRUS A/BRISBANE/10/2010 (H1N1) ANTIGEN (MDCK CELL DERIVED, PROPIOLACTONE INACTIVATED)\I
     Indication: Product used for unknown indication
     Dosage: ARM RIGHT
     Route: 065
     Dates: start: 20230918
  3. COVID-19 VACCINE [Concomitant]
     Indication: Immunisation
     Dosage: ARM RIGHT
     Route: 065
     Dates: start: 20230927
  4. ADVIL [Concomitant]
     Active Substance: IBUPROFEN
     Indication: Pyrexia
     Route: 065
     Dates: start: 20230928

REACTIONS (1)
  - Therapeutic product effect incomplete [Unknown]

NARRATIVE: CASE EVENT DATE: 20230928
